FAERS Safety Report 16233052 (Version 1)
Quarter: 2019Q2

REPORT INFORMATION
  Report Type: Spontaneous
  Country: US (occurrence: US)
  Receive Date: 20190424
  Receipt Date: 20190424
  Transmission Date: 20190711
  Serious: No
  Sender: FDA-Public Use
  Company Number: US-PFIZER INC-2019167949

PATIENT
  Sex: Male

DRUGS (1)
  1. CHANTIX [Suspect]
     Active Substance: VARENICLINE TARTRATE
     Indication: SMOKING CESSATION THERAPY
     Dosage: UNK, ONE STARTER PACK EVERY DAY, STARTING MONTH BOX
     Route: 048
     Dates: start: 20190305

REACTIONS (2)
  - Nightmare [Unknown]
  - Intentional product misuse [Unknown]
